FAERS Safety Report 5321508-0 (Version None)
Quarter: 2007Q1

REPORT INFORMATION
  Report Type: 
  Country: None (occurrence: None)
  Receive Date: 20070220
  Receipt Date: 20061121
  Transmission Date: 20070707
  Serious: No
  Sender: FDA-Public Use
  Company Number: TPA2006A02112

PATIENT
  Age: 58 Year
  Sex: Female
  Weight: 83.9154 kg

DRUGS (5)
  1. ROZEREM [Suspect]
     Indication: INSOMNIA
     Dosage: 8 MG, QHS, PER ORAL
     Route: 048
     Dates: start: 20061001, end: 20061001
  2. THYROID TAB [Concomitant]
  3. ADHS (VASOPRESSIN INJECTION) [Concomitant]
  4. DHEA (PRASTERONE) [Concomitant]
  5. MULTIVITAMIN WITH MINERALS (MULTIVITAMINS WITH MINERALS) [Concomitant]

REACTIONS (2)
  - FEELING ABNORMAL [None]
  - HEART RATE INCREASED [None]
